FAERS Safety Report 4788342-1 (Version None)
Quarter: 2005Q4

REPORT INFORMATION
  Report Type: 
  Country: None (occurrence: None)
  Receive Date: 20051005
  Receipt Date: 20040607
  Transmission Date: 20060501
  Serious: Yes (Hospitalization)
  Sender: FDA-Public Use
  Company Number: PHRM2004FR02016

PATIENT
  Age: 39 Year
  Sex: Female

DRUGS (10)
  1. LEVONORGESTREL AND ETHINYL ESTRADIOL [Suspect]
     Route: 048
     Dates: start: 20040110, end: 20040120
  2. OMEPRAZOLE [Suspect]
     Route: 048
     Dates: start: 20020211
  3. DEROXAT [Suspect]
     Route: 048
     Dates: start: 20040223
  4. ASPEGIC 325 [Concomitant]
  5. IMOVANE [Concomitant]
  6. LEXOMIL [Concomitant]
  7. CORTANCYL [Concomitant]
  8. DEROXAT [Concomitant]
  9. EFFERALGAN [Concomitant]
  10. TRILEPTAL [Suspect]
     Route: 048
     Dates: start: 20040226, end: 20040228

REACTIONS (7)
  - ABDOMINAL PAIN [None]
  - CHOLESTASIS [None]
  - HAIR COLOUR CHANGES [None]
  - HEPATOMEGALY [None]
  - HYPOTENSION [None]
  - IRON METABOLISM DISORDER [None]
  - PERITONEAL EFFUSION [None]
